FAERS Safety Report 23623729 (Version 1)
Quarter: 2024Q1

REPORT INFORMATION
  Report Type: Spontaneous
  Country: FR (occurrence: FR)
  Receive Date: 20240312
  Receipt Date: 20240312
  Transmission Date: 20240409
  Serious: Yes (Hospitalization)
  Sender: FDA-Public Use
  Company Number: None

PATIENT
  Age: 68 Year
  Sex: Female
  Weight: 60 kg

DRUGS (1)
  1. LEVOFLOXACIN [Suspect]
     Active Substance: LEVOFLOXACIN
     Indication: Lung disorder
     Route: 065
     Dates: start: 20230724, end: 20230803

REACTIONS (3)
  - Neutropenia [Recovered/Resolved]
  - Tendonitis [Recovering/Resolving]
  - Coccydynia [Recovering/Resolving]

NARRATIVE: CASE EVENT DATE: 20230726
